FAERS Safety Report 5898163-4 (Version None)
Quarter: 2008Q3

REPORT INFORMATION
  Report Type: 
  Country: None (occurrence: None)
  Receive Date: 20080925
  Receipt Date: 20080915
  Transmission Date: 20090109
  Serious: Yes (Hospitalization)
  Sender: FDA-Public Use
  Company Number: US-MERCK-0809USA02180

PATIENT
  Age: 68 Year
  Sex: Female

DRUGS (9)
  1. JANUVIA [Suspect]
     Indication: DIABETES MELLITUS
     Route: 048
     Dates: start: 20080807
  2. LESCOL [Concomitant]
     Route: 065
  3. NORVASC [Concomitant]
     Route: 065
  4. LOPRESSOR [Concomitant]
     Route: 065
  5. ACTOS [Concomitant]
     Route: 065
     Dates: end: 20080801
  6. PRANDIN [Concomitant]
     Route: 065
  7. GLUCOPHAGE [Concomitant]
     Route: 065
     Dates: end: 20080801
  8. ALLEGRA [Concomitant]
     Route: 065
     Dates: start: 20080801
  9. LASIX [Concomitant]
     Route: 042
     Dates: start: 20080701

REACTIONS (2)
  - ADVERSE EVENT [None]
  - DYSPNOEA [None]
